FAERS Safety Report 8541133 (Version 3)
Quarter: 2012Q4

REPORT INFORMATION
  Report Type: 
  Country: FR (occurrence: FR)
  Receive Date: 20120502
  Receipt Date: 20120913
  Transmission Date: 20130627
  Serious: Yes (Life-Threatening, Hospitalization)
  Sender: FDA-Public Use
  Company Number: FR-ROCHE-1062943

PATIENT
  Age: 68 Year
  Sex: Male
  Weight: 112 kg

DRUGS (6)
  1. MABTHERA [Suspect]
     Indication: LYMPHOCYTIC LYMPHOMA
     Route: 042
     Dates: start: 20120423, end: 20120423
  2. CRESTOR [Concomitant]
     Indication: HYPERCHOLESTEROLAEMIA
  3. NISISCO [Concomitant]
     Indication: HYPERTENSION
  4. PARACETAMOL [Concomitant]
     Route: 042
  5. ATARAX [Concomitant]
     Route: 042
  6. SOLU-MEDRONE [Concomitant]
     Route: 042

REACTIONS (6)
  - Infusion related reaction [Recovered/Resolved]
  - Cyanosis [Recovered/Resolved]
  - Livedo reticularis [Recovered/Resolved]
  - Tachypnoea [Recovered/Resolved]
  - Bronchospasm [Recovered/Resolved]
  - Tremor [Recovered/Resolved]
